FAERS Safety Report 5891526-2 (Version None)
Quarter: 2008Q3

REPORT INFORMATION
  Report Type: 
  Country: None (occurrence: None)
  Receive Date: 20080918
  Receipt Date: 20080903
  Transmission Date: 20090109
  Serious: Yes (Other)
  Sender: FDA-Public Use
  Company Number: 2008S1016458

PATIENT
  Sex: Male

DRUGS (1)
  1. DOXYCYCLINE [Suspect]
     Indication: ERYTHEMA MIGRANS
     Dosage: 200 MG; ORAL
     Route: 048
     Dates: start: 20080619, end: 20080709

REACTIONS (4)
  - ACRODERMATITIS [None]
  - BLISTER [None]
  - PHOTOSENSITIVITY REACTION [None]
  - PRURITUS [None]
